FAERS Safety Report 14313923 (Version 1)
Quarter: 2017Q4

REPORT INFORMATION
  Report Type: Spontaneous
  Country: US (occurrence: US)
  Receive Date: 20171221
  Receipt Date: 20171221
  Transmission Date: 20180321
  Serious: No
  Sender: FDA-Public Use
  Company Number: US-TELIGENT, INC-IGIL20170736

PATIENT
  Sex: Male

DRUGS (2)
  1. ECONAZOLE NITRATE CREAM 1% [Suspect]
     Active Substance: ECONAZOLE NITRATE
     Dosage: UNKNOWN
     Route: 061
  2. ECONAZOLE NITRATE CREAM 1% [Suspect]
     Active Substance: ECONAZOLE NITRATE
     Indication: TINEA PEDIS
     Dosage: UNKNOWN
     Route: 061

REACTIONS (2)
  - Inappropriate schedule of drug administration [None]
  - Drug effect incomplete [Not Recovered/Not Resolved]
